FAERS Safety Report 11457206 (Version 1)
Quarter: 2015Q3

REPORT INFORMATION
  Report Type: Report from Study
  Country: DE (occurrence: DE)
  Receive Date: 20150904
  Receipt Date: 20150904
  Transmission Date: 20151125
  Serious: Yes (Death)
  Sender: FDA-Public Use
  Company Number: DE-BEH-2015053660

PATIENT
  Age: 65 Year
  Sex: Male
  Weight: 66 kg

DRUGS (21)
  1. PRIVIGEN [Suspect]
     Active Substance: HUMAN IMMUNOGLOBULIN G
     Dates: start: 20111125, end: 20111125
  2. OLMESARTAN [Concomitant]
     Active Substance: OLMESARTAN
     Dates: end: 20120810
  3. PRIVIGEN [Suspect]
     Active Substance: HUMAN IMMUNOGLOBULIN G
     Dates: start: 20110411, end: 20110411
  4. PRIVIGEN [Suspect]
     Active Substance: HUMAN IMMUNOGLOBULIN G
     Dates: start: 20101122, end: 20101122
  5. PRIVIGEN [Suspect]
     Active Substance: HUMAN IMMUNOGLOBULIN G
     Dates: start: 20110822, end: 20110822
  6. FINASTERID [Concomitant]
     Dates: end: 20120810
  7. OXAZEPAM. [Concomitant]
     Active Substance: OXAZEPAM
     Dates: end: 20120810
  8. ARANESP [Concomitant]
     Active Substance: DARBEPOETIN ALFA
     Dates: start: 20101122, end: 20120810
  9. TAMSULOSIN [Concomitant]
     Active Substance: TAMSULOSIN
     Dates: end: 20120810
  10. PRIVIGEN [Suspect]
     Active Substance: HUMAN IMMUNOGLOBULIN G
     Dates: start: 20110214, end: 20110214
  11. PRIVIGEN [Suspect]
     Active Substance: HUMAN IMMUNOGLOBULIN G
     Dates: start: 20120316, end: 20120316
  12. TORASEMID [Concomitant]
     Active Substance: TORSEMIDE
     Dates: end: 20120810
  13. OPIPRAMOL [Concomitant]
     Active Substance: OPIPRAMOL
     Dates: end: 20120810
  14. PRIVIGEN [Suspect]
     Active Substance: HUMAN IMMUNOGLOBULIN G
     Dates: start: 20101122, end: 20101122
  15. PRIVIGEN [Suspect]
     Active Substance: HUMAN IMMUNOGLOBULIN G
     Dates: start: 20110117, end: 20110117
  16. METOPROLOL [Concomitant]
     Active Substance: METOPROLOL
     Dates: end: 20120810
  17. PRIVIGEN [Suspect]
     Active Substance: HUMAN IMMUNOGLOBULIN G
     Indication: CHRONIC LYMPHOCYTIC LEUKAEMIA
     Dates: start: 20101220, end: 20101220
  18. PRIVIGEN [Suspect]
     Active Substance: HUMAN IMMUNOGLOBULIN G
     Dates: start: 20110523, end: 20110523
  19. HYDROCHLOROTHIAZID [Concomitant]
     Active Substance: HYDROCHLOROTHIAZIDE
     Dates: end: 20120810
  20. NOVAMINSULFON [Concomitant]
     Active Substance: METAMIZOLE
     Dosage: START DATE: ??-AUG-2010
     Dates: end: 20120810
  21. BROMAZEPAM [Concomitant]
     Active Substance: BROMAZEPAM
     Dates: end: 20120810

REACTIONS (1)
  - Death [Fatal]

NARRATIVE: CASE EVENT DATE: 20120810
